FAERS Safety Report 9525033 (Version 2)
Quarter: 2013Q3

REPORT INFORMATION
  Report Type: Spontaneous
  Country: FR (occurrence: FR)
  Receive Date: 20130916
  Receipt Date: 20130926
  Transmission Date: 20140515
  Serious: Yes (Hospitalization)
  Sender: FDA-Public Use
  Company Number: FR-ROCHE-1273176

PATIENT
  Sex: Female
  Weight: 71 kg

DRUGS (4)
  1. AVASTIN [Suspect]
     Indication: METASTASIS
     Route: 042
     Dates: start: 20130418, end: 20130722
  2. XELODA [Concomitant]
     Indication: BREAST CANCER METASTATIC
     Route: 048
     Dates: start: 20130724, end: 20130806
  3. TAXOL [Concomitant]
  4. ERIBULINE [Concomitant]

REACTIONS (1)
  - Renal tubular disorder [Recovered/Resolved]
